FAERS Safety Report 7472524-4 (Version None)
Quarter: 2011Q2

REPORT INFORMATION
  Report Type: 
  Country: None (occurrence: None)
  Receive Date: 20110511
  Receipt Date: 20110503
  Transmission Date: 20111010
  Serious: Yes (Other)
  Sender: FDA-Public Use
  Company Number: FI-NOVOPROD-326834

PATIENT
  Age: 67 Year
  Sex: Male
  Weight: 154 kg

DRUGS (17)
  1. VICTOZA [Suspect]
     Dosage: 1.2 MG, QD  AFTER A WEEK
     Route: 058
     Dates: end: 20110413
  2. INSULIN [Concomitant]
     Indication: DIABETES MELLITUS
     Dosage: 20-50 IU AT MEALS
     Route: 058
  3. LOSATRIX [Concomitant]
     Dosage: 1 DF, QD
     Route: 048
  4. APURIN [Concomitant]
     Dosage: 1 DF, BID
     Route: 048
  5. LANTUS [Concomitant]
     Indication: DIABETES MELLITUS
     Dosage: 40 IU, QD
     Route: 058
  6. LANTUS [Concomitant]
     Dosage: 60 IU, QD
     Route: 058
  7. LANTUS [Concomitant]
     Dosage: 150 IU, QD
     Route: 058
  8. JANUVIA [Concomitant]
     Indication: DIABETES MELLITUS
     Dosage: 100 MG, QD
     Route: 048
     Dates: end: 20100101
  9. OBSIDAN                            /00023514/ [Concomitant]
     Dosage: 1 DF, QD
     Route: 048
  10. NORSPAN                            /00444001/ [Concomitant]
  11. MAREVAN [Concomitant]
  12. NEXIUM [Concomitant]
  13. SELOKENZOC [Concomitant]
     Dosage: 1 DF, QD
     Route: 048
  14. VICTOZA [Suspect]
     Indication: TYPE 2 DIABETES MELLITUS
     Dosage: 0.6 MG, QD FOR A WEEK
     Route: 058
     Dates: start: 20100806
  15. EMCONCOR [Concomitant]
     Dosage: 1 DF, QD
     Route: 048
  16. FURESIS [Concomitant]
     Dosage: 1 DF, QD
     Route: 048
  17. METOPROLOL TARTRATE [Concomitant]
     Dosage: DOSAGE AS NEEDED

REACTIONS (1)
  - ATRIAL FIBRILLATION [None]
